FAERS Safety Report 4845564-9 (Version None)
Quarter: 2005Q4

REPORT INFORMATION
  Report Type: 
  Country: None (occurrence: None)
  Receive Date: 20051201
  Receipt Date: 20051116
  Transmission Date: 20060501
  Serious: Yes (Other)
  Sender: FDA-Public Use
  Company Number: 2005BI014533

PATIENT
  Age: 31 Year
  Sex: Female

DRUGS (1)
  1. AVONEX [Suspect]
     Indication: MULTIPLE SCLEROSIS
     Dosage: 30 UG;QW;IM
     Route: 030
     Dates: start: 20050801, end: 20050801

REACTIONS (6)
  - APHASIA [None]
  - BLINDNESS [None]
  - CONVULSION [None]
  - HYPERTENSION [None]
  - MUSCLE SPASMS [None]
  - PYREXIA [None]
